FAERS Safety Report 9353679 (Version 1)
Quarter: 2013Q2

REPORT INFORMATION
  Report Type: Spontaneous
  Country: US (occurrence: US)
  Receive Date: 20130618
  Receipt Date: 20130618
  Transmission Date: 20140414
  Serious: Yes (Other)
  Sender: FDA-Public Use
  Company Number: US-BAYER-2013-074687

PATIENT
  Age: 85 Year
  Sex: Male

DRUGS (4)
  1. LEVITRA [Suspect]
     Dosage: 10 MG, UNK
     Dates: end: 20130612
  2. LEVITRA [Suspect]
     Dosage: 1 DF, OW
     Route: 048
     Dates: end: 20130612
  3. LOPRESSOR [Concomitant]
     Indication: HYPERTENSION
  4. ACCUPRIL [Concomitant]
     Indication: HYPERTENSION

REACTIONS (3)
  - Heart rate increased [Not Recovered/Not Resolved]
  - Dizziness [Not Recovered/Not Resolved]
  - Drug ineffective [None]
